FAERS Safety Report 8496850-5 (Version None)
Quarter: 2012Q3

REPORT INFORMATION
  Report Type: 
  Country: None (occurrence: None)
  Receive Date: 20120709
  Receipt Date: 20120627
  Transmission Date: 20120928
  Serious: Yes (Other)
  Sender: FDA-Public Use
  Company Number: US-ELI_LILLY_AND_COMPANY-US201205009455

PATIENT
  Sex: Female
  Weight: 54.875 kg

DRUGS (5)
  1. PHAZYME [Concomitant]
     Dosage: UNK, QD
  2. PHENOBARBITAL TAB [Concomitant]
     Dosage: 30 MG, UNK
     Route: 048
  3. ZOLOFT [Concomitant]
     Dosage: 100 MG, QD
  4. SINGULAIR [Concomitant]
     Dosage: UNK
  5. FORTEO [Suspect]
     Indication: OSTEOPENIA
     Dosage: 20 UG, QD
     Route: 058
     Dates: start: 20110901, end: 20120401

REACTIONS (8)
  - NAUSEA [None]
  - CHEST PAIN [None]
  - TACHYCARDIA [None]
  - HEART VALVE INCOMPETENCE [None]
  - HYPOTENSION [None]
  - PALPITATIONS [None]
  - SYNCOPE [None]
  - DIZZINESS [None]
